FAERS Safety Report 5713662-3 (Version None)
Quarter: 2008Q2

REPORT INFORMATION
  Report Type: 
  Country: None (occurrence: None)
  Receive Date: 20080418
  Receipt Date: 20080411
  Transmission Date: 20081010
  Serious: Yes (Hospitalization)
  Sender: FDA-Public Use
  Company Number: 2008SP006929

PATIENT
  Age: 4 Year
  Sex: Male
  Weight: 23 kg

DRUGS (1)
  1. CLARINASE (LORATADINE/PSEUDOEPHEDRINE SULFATE) (LORATADINE W/PSEUDOEPH [Suspect]
     Indication: RHINITIS ALLERGIC
     Dosage: 5 MG;BID;PO
     Route: 048
     Dates: start: 20080403, end: 20080408

REACTIONS (4)
  - MEDICATION ERROR [None]
  - ORAL PRURITUS [None]
  - RASH [None]
  - RASH ERYTHEMATOUS [None]
